FAERS Safety Report 10026096 (Version 1)
Quarter: 2014Q1

REPORT INFORMATION
  Report Type: Spontaneous
  Country: US (occurrence: US)
  Receive Date: 20140320
  Receipt Date: 20140320
  Transmission Date: 20141002
  Serious: No
  Sender: FDA-Public Use
  Company Number: US-009507513-1402USA013771

PATIENT
  Age: 74 Year
  Sex: Female

DRUGS (1)
  1. CORICIDIN HBP CHEST CONGESTION AND COUGH [Suspect]
     Indication: COUGH
     Dosage: UNK, UNKNOWN
     Route: 048
     Dates: start: 20140207

REACTIONS (1)
  - Diarrhoea [Unknown]
